FAERS Safety Report 4602396-4 (Version None)
Quarter: 2005Q1

REPORT INFORMATION
  Report Type: 
  Country: None (occurrence: None)
  Receive Date: 20050307
  Receipt Date: 20050223
  Transmission Date: 20050727
  Serious: No
  Sender: FDA-Public Use
  Company Number: 05H-163-0292275-00

PATIENT
  Age: 34 Year
  Sex: Female

DRUGS (4)
  1. MORPHINE SULFATE INJ [Suspect]
     Indication: PAIN
     Dosage: 4 MG, TWICE, INTRAVENOUS
     Route: 042
  2. HYDROMORPHONE HYDROCHLORIDE [Suspect]
     Indication: PAIN
     Dosage: 2 MG, EVERY 30 MINUTES; SEE IMAGE
  3. PROMETHAZINE [Suspect]
     Indication: PAIN
     Dosage: 12.5 MG
  4. CIPROFLOXACIN [Concomitant]

REACTIONS (5)
  - DRUG INTERACTION POTENTIATION [None]
  - INADEQUATE ANALGESIA [None]
  - PERITONITIS [None]
  - RESPIRATORY DEPRESSION [None]
  - SEDATION [None]
